FAERS Safety Report 4285864-7 (Version None)
Quarter: 2004Q1

REPORT INFORMATION
  Report Type: 
  Country: None (occurrence: None)
  Receive Date: 20040204
  Receipt Date: 20040204
  Transmission Date: 20041129
  Serious: No
  Sender: FDA-Public Use
  Company Number: None

PATIENT
  Age: 46 Year
  Sex: Female
  Weight: 78.9259 kg

DRUGS (4)
  1. REMICADE [Suspect]
     Indication: RHEUMATOID ARTHRITIS
     Dosage: 300 MG EVERY 6-8 WEEKS GIVEN IV
     Route: 042
     Dates: start: 20021015, end: 20030701
  2. CELEBREX [Concomitant]
  3. ARAVA [Concomitant]
  4. PLAQUENIL [Concomitant]

REACTIONS (4)
  - OPEN WOUND [None]
  - OSTEOMYELITIS [None]
  - PAIN IN EXTREMITY [None]
  - WOUND DRAINAGE [None]
